FAERS Safety Report 6225912-8 (Version None)
Quarter: 2009Q2

REPORT INFORMATION
  Report Type: 
  Country: None (occurrence: None)
  Receive Date: 20090612
  Receipt Date: 20090501
  Transmission Date: 20091009
  Serious: No
  Sender: FDA-Public Use
  Company Number: US-ABBOTT-09P-163-0571462-00

PATIENT
  Sex: Male
  Weight: 58.112 kg

DRUGS (4)
  1. HUMIRA [Suspect]
     Indication: RHEUMATOID ARTHRITIS
     Route: 058
     Dates: start: 20081101, end: 20090301
  2. PREDNISONE [Concomitant]
     Indication: RHEUMATOID ARTHRITIS
  3. FINASTERIDE [Concomitant]
     Indication: PROSTATOMEGALY
  4. HYDROCHLOROTHIAZIDE [Concomitant]
     Indication: HYPERTENSION

REACTIONS (3)
  - GENITAL RASH [None]
  - HERPES ZOSTER [None]
  - LOCALISED INFECTION [None]
